FAERS Safety Report 8155302-2 (Version None)
Quarter: 2012Q1

REPORT INFORMATION
  Report Type: 
  Country: None (occurrence: None)
  Receive Date: 20120222
  Receipt Date: 20120213
  Transmission Date: 20120608
  Serious: No
  Sender: FDA-Public Use
  Company Number: US-BIOGENIDEC-2012BI005781

PATIENT
  Age: 42 Year
  Sex: Female

DRUGS (5)
  1. TYSABRI [Suspect]
     Indication: MULTIPLE SCLEROSIS
     Route: 042
     Dates: start: 20110615
  2. AVONEX [Concomitant]
     Indication: MULTIPLE SCLEROSIS
     Route: 030
  3. AVONEX [Concomitant]
     Route: 030
     Dates: start: 20101004
  4. AVONEX [Concomitant]
     Route: 030
     Dates: start: 20080305
  5. AVONEX [Concomitant]
     Route: 030
     Dates: start: 20000101

REACTIONS (3)
  - ARTHRALGIA [None]
  - URINARY TRACT INFECTION [None]
  - DIARRHOEA [None]
